FAERS Safety Report 20758886 (Version 1)
Quarter: 2022Q2

REPORT INFORMATION
  Report Type: Spontaneous
  Country: US (occurrence: US)
  Receive Date: 20220427
  Receipt Date: 20220427
  Transmission Date: 20220721
  Serious: No
  Sender: FDA-Public Use
  Company Number: US-PFIZER INC-202101706099

PATIENT
  Age: 71 Year
  Sex: Female
  Weight: 65.77 kg

DRUGS (3)
  1. CHANTIX [Suspect]
     Active Substance: VARENICLINE TARTRATE
     Indication: Smoking cessation therapy
     Dosage: 0.5 MG (STARTING WEEK TAKE 0.5MG FOR 11 TABLETS )
     Dates: start: 20200916
  2. CHANTIX [Suspect]
     Active Substance: VARENICLINE TARTRATE
     Dosage: 1 MG (CONTINUING WEEK TAKE 1MG TABLETS FOR 42 TABLETS, TAKES TWO A DAY)
     Dates: start: 20200916
  3. CHANTIX [Suspect]
     Active Substance: VARENICLINE TARTRATE
     Dosage: UNK (QUANTITY 56 AND CONTAINS FOUR CONTINUING WEEKS, TAKE1 PILL IN MORNING AND ONE AT NIGHT,)
     Dates: start: 20210419

REACTIONS (2)
  - Cerebral disorder [Unknown]
  - Recalled product administered [Unknown]
